FAERS Safety Report 8798953 (Version 1)
Quarter: 2012Q4

REPORT INFORMATION
  Report Type: 
  Country: US (occurrence: US)
  Receive Date: 20120920
  Receipt Date: 20120920
  Transmission Date: 20130627
  Serious: Yes (Other)
  Sender: FDA-Public Use
  Company Number: US-ELI_LILLY_AND_COMPANY-US201209003900

PATIENT
  Sex: Male

DRUGS (1)
  1. CIALIS [Suspect]
     Dosage: UNK, unknown

REACTIONS (3)
  - Catheterisation cardiac [Unknown]
  - Blood pressure decreased [Recovered/Resolved]
  - Drug interaction [Recovered/Resolved]
